FAERS Safety Report 16254462 (Version 1)
Quarter: 2019Q2

REPORT INFORMATION
  Report Type: Report from Study
  Country: GB (occurrence: GB)
  Receive Date: 20190430
  Receipt Date: 20190430
  Transmission Date: 20190711
  Serious: Yes (Hospitalization, Other)
  Sender: FDA-Public Use
  Company Number: GB-ACCORD-124537

PATIENT
  Age: 75 Year
  Sex: Female

DRUGS (26)
  1. ATORVASTATIN [Concomitant]
     Active Substance: ATORVASTATIN
     Indication: PROPHYLAXIS
     Route: 048
  2. DOCETAXEL. [Suspect]
     Active Substance: DOCETAXEL
     Indication: BREAST CANCER
     Route: 042
     Dates: start: 20150721, end: 20150807
  3. BISOPROLOL [Concomitant]
     Active Substance: BISOPROLOL
     Indication: EJECTION FRACTION DECREASED
     Dosage: ALSO TAKEN 1.25 MG FROM 21-JAN-2016
     Route: 048
     Dates: start: 20160415
  4. DALTEPARIN [Concomitant]
     Active Substance: DALTEPARIN
     Indication: PLEURAL EFFUSION
     Route: 058
     Dates: start: 20151206, end: 20151206
  5. PARACETAMOL [Concomitant]
     Active Substance: ACETAMINOPHEN
     Indication: PREMEDICATION
     Dosage: ALSO TAKEN 1 G FROM 31-MAY-2016
     Route: 048
     Dates: start: 20150721
  6. RAMIPRIL. [Concomitant]
     Active Substance: RAMIPRIL
     Dosage: ALSO TAKEN 3.75 MG FROM MAY-2016
     Route: 048
     Dates: start: 20160415, end: 201605
  7. DEXAMETHASONE. [Concomitant]
     Active Substance: DEXAMETHASONE
     Indication: PROPHYLAXIS
     Dosage: BD  FOR  3 DAYS
     Route: 048
     Dates: start: 20150721, end: 20150722
  8. PREDNISOLONE. [Concomitant]
     Active Substance: PREDNISOLONE
     Route: 048
     Dates: start: 20160601, end: 20160606
  9. IOPIDINE [Concomitant]
     Active Substance: APRACLONIDINE HYDROCHLORIDE
     Route: 047
     Dates: start: 20160601, end: 20160629
  10. FENTANYL. [Concomitant]
     Active Substance: FENTANYL
     Route: 042
     Dates: start: 20160531, end: 20160601
  11. FUROSEMIDE. [Concomitant]
     Active Substance: FUROSEMIDE
     Route: 048
     Dates: start: 20151211
  12. ANASTROZOLE. [Suspect]
     Active Substance: ANASTROZOLE
     Indication: BREAST CANCER
     Route: 048
     Dates: start: 20160115
  13. TRASTUZUMAB. [Suspect]
     Active Substance: TRASTUZUMAB
     Indication: BREAST CANCER
     Route: 058
     Dates: start: 20150721, end: 20151126
  14. PERTUZUMAB. [Suspect]
     Active Substance: PERTUZUMAB
     Indication: BREAST CANCER
     Dosage: LAST ADMINISTERED ON 26-NOV-2015
     Route: 042
     Dates: start: 20150721
  15. CODEINE PHOSPHATE/PARACETAMOL [Concomitant]
     Dosage: AS NEEDED
     Route: 048
     Dates: start: 20150720
  16. METOCLOPRAMIDE. [Concomitant]
     Active Substance: METOCLOPRAMIDE
     Indication: PROPHYLAXIS
     Dosage: AS NEEDED
     Route: 048
     Dates: start: 20150721, end: 20150727
  17. DIGOXIN. [Concomitant]
     Active Substance: DIGOXIN
     Route: 048
     Dates: start: 20160121
  18. DIAMOX SEQUELS [Concomitant]
     Active Substance: ACETAZOLAMIDE
     Route: 047
     Dates: start: 20160601, end: 20160604
  19. LISINOPRIL. [Concomitant]
     Active Substance: LISINOPRIL
     Indication: DYSPNOEA
     Dosage: ALSO TAKEN 2.5 MG FROM 21-JAN-2016 TO 15-APR-2016
     Route: 048
     Dates: start: 20151218, end: 20160121
  20. FELODIPINE. [Concomitant]
     Active Substance: FELODIPINE
     Route: 048
     Dates: start: 20161030
  21. CLOPIDOGREL [Concomitant]
     Active Substance: CLOPIDOGREL BISULFATE
     Indication: PROPHYLAXIS
     Route: 048
  22. ONDANSETRON [Concomitant]
     Active Substance: ONDANSETRON
     Indication: PROPHYLAXIS
     Dosage: TWICE DAILY FOR 3 DAYS POST CHEMOTHERAPY
     Route: 048
     Dates: start: 20150721, end: 20150722
  23. DEXAMETHASONE/TOBRAMYCIN [Concomitant]
     Route: 047
     Dates: start: 20160601
  24. CHLORPHENAMINE/CHLORPHENAMINE MALEATE/CHLORPHENAMINE RESINATE/CHLORPHENAMINE TANNATE [Concomitant]
     Indication: PREMEDICATION
     Route: 042
     Dates: start: 20150721, end: 20151126
  25. FUROSEMIDE. [Concomitant]
     Active Substance: FUROSEMIDE
     Indication: DYSPNOEA
     Dosage: ALSO TAKEN 40 MG FROM 11-DEC-2015(TABLET)
     Route: 042
     Dates: start: 20151206, end: 20151207
  26. MYDRILATE [Concomitant]
     Active Substance: CYCLOPENTOLATE HYDROCHLORIDE
     Route: 047
     Dates: start: 20160601, end: 20160610

REACTIONS (13)
  - Back pain [Recovered/Resolved]
  - Ejection fraction decreased [Recovered/Resolved]
  - Dizziness [Recovered/Resolved]
  - Weight decreased [Recovered/Resolved]
  - Retinal detachment [Recovered/Resolved with Sequelae]
  - Alopecia [Recovered/Resolved]
  - Constipation [Recovered/Resolved]
  - Pleural effusion [Recovered/Resolved]
  - Presyncope [Recovered/Resolved]
  - Diarrhoea [Recovered/Resolved]
  - Fatigue [Not Recovered/Not Resolved]
  - Nausea [Recovered/Resolved]
  - Dyspnoea [Recovered/Resolved]

NARRATIVE: CASE EVENT DATE: 20150721
